FAERS Safety Report 4956853-1 (Version None)
Quarter: 2006Q1

REPORT INFORMATION
  Report Type: 
  Country: None (occurrence: None)
  Receive Date: 20060323
  Receipt Date: 20060306
  Transmission Date: 20060701
  Serious: Yes (Other)
  Sender: FDA-Public Use
  Company Number: DE200603001052

PATIENT
  Age: 49 Year
  Sex: Female

DRUGS (1)
  1. CYMBALTA [Suspect]
     Indication: DEPRESSION
     Dosage: SEE IMAGE
     Route: 048

REACTIONS (4)
  - BLOOD PRESSURE SYSTOLIC INCREASED [None]
  - BREAST DISCOMFORT [None]
  - CONDITION AGGRAVATED [None]
  - OEDEMA [None]
